FAERS Safety Report 9115627 (Version 1)
Quarter: 2013Q1

REPORT INFORMATION
  Report Type: Spontaneous
  Country: US (occurrence: US)
  Receive Date: 20130225
  Receipt Date: 20130225
  Transmission Date: 20140127
  Serious: Yes (Other)
  Sender: FDA-Public Use
  Company Number: US-ASTRAZENECA-2013SE10725

PATIENT
  Age: 89 Year
  Sex: Female
  Weight: 72.6 kg

DRUGS (3)
  1. CRESTOR [Suspect]
     Indication: BLOOD CHOLESTEROL INCREASED
     Dosage: DAILY
     Route: 048
  2. CRESTOR [Suspect]
     Indication: BLOOD CHOLESTEROL INCREASED
     Route: 048
     Dates: start: 201302, end: 201302
  3. OTHER MEDICATIONS [Concomitant]
     Dosage: HAS TAKEN FOR YEARS

REACTIONS (4)
  - Fall [Unknown]
  - Contusion [Unknown]
  - Blood cholesterol increased [Unknown]
  - Drug dose omission [Unknown]
